FAERS Safety Report 26087347 (Version 1)
Quarter: 2025Q4

REPORT INFORMATION
  Report Type: Report from Study
  Country: EU (occurrence: EU)
  Receive Date: 20251125
  Receipt Date: 20251125
  Transmission Date: 20260118
  Serious: Yes (Other)
  Sender: ALEXION PHARMACEUTICALS
  Company Number: EU-ASTRAZENECA-202511GLO017796IT

PATIENT
  Age: 61 Year
  Sex: Female

DRUGS (5)
  1. OSIMERTINIB [Suspect]
     Active Substance: OSIMERTINIB
     Indication: EGFR gene mutation
     Route: 065
  2. OSIMERTINIB [Suspect]
     Active Substance: OSIMERTINIB
     Indication: Non-small cell lung cancer
  3. CARBOPLATIN [Concomitant]
     Active Substance: CARBOPLATIN
     Indication: Non-small cell lung cancer
     Route: 065
  4. ETOPOSIDE [Concomitant]
     Active Substance: ETOPOSIDE
     Indication: Non-small cell lung cancer
     Route: 065
  5. TEPOTINIB [Concomitant]
     Active Substance: TEPOTINIB
     Indication: Non-small cell lung cancer
     Route: 065

REACTIONS (3)
  - Malignant neoplasm progression [Unknown]
  - MET gene amplification [Unknown]
  - Malignant transformation [Unknown]
